FAERS Safety Report 9057666 (Version 1)
Quarter: 2013Q1

REPORT INFORMATION
  Report Type: Spontaneous
  Country: EC (occurrence: EC)
  Receive Date: 20130204
  Receipt Date: 20130204
  Transmission Date: 20140127
  Serious: Yes (Hospitalization)
  Sender: FDA-Public Use
  Company Number: PHHY2013EC008965

PATIENT
  Sex: Female

DRUGS (1)
  1. EXFORGE HCT [Suspect]
     Indication: HYPERTENSION
     Dosage: 1 DF (160MG VALS/ 5MG AMLO/ 12.5MG HCT), Q48H
     Route: 048
     Dates: start: 201206

REACTIONS (4)
  - Hepatic cirrhosis [Unknown]
  - Abdominal distension [Unknown]
  - Renal failure acute [Unknown]
  - Fluid retention [Unknown]
